FAERS Safety Report 23075690 (Version 3)
Quarter: 2023Q4

REPORT INFORMATION
  Report Type: Report from Study
  Country: US (occurrence: US)
  Receive Date: 20231017
  Receipt Date: 20231122
  Transmission Date: 20240110
  Serious: Yes (Life-Threatening, Hospitalization, Disabling)
  Sender: FDA-Public Use
  Company Number: US-ARGENX-2023-ARGX-US002683

PATIENT

DRUGS (1)
  1. VYVGART [Suspect]
     Active Substance: EFGARTIGIMOD ALFA-FCAB
     Indication: Myasthenia gravis
     Dosage: 10 MG/KG
     Route: 042

REACTIONS (14)
  - Coma [Recovered/Resolved]
  - Sepsis [Not Recovered/Not Resolved]
  - Urinary tract infection [Recovering/Resolving]
  - Kidney infection [Unknown]
  - Balance disorder [Unknown]
  - Fall [Unknown]
  - Skin abrasion [Unknown]
  - Epistaxis [Unknown]
  - Face injury [Unknown]
  - Eye contusion [Unknown]
  - Illness [Unknown]
  - Urinary tract infection [Unknown]
  - Confusional state [Unknown]
  - Asthenia [Unknown]

NARRATIVE: CASE EVENT DATE: 20230811
